FAERS Safety Report 24305091 (Version 1)
Quarter: 2024Q3

REPORT INFORMATION
  Report Type: Spontaneous
  Country: US (occurrence: US)
  Receive Date: 20240911
  Receipt Date: 20240911
  Transmission Date: 20241017
  Serious: No
  Sender: ROCHE
  Company Number: US-ROCHE-10000076121

PATIENT
  Sex: Male

DRUGS (13)
  1. XOLAIR [Suspect]
     Active Substance: OMALIZUMAB
     Indication: Chronic obstructive pulmonary disease
     Dosage: 300 MG/2ML
     Route: 058
  2. XOLAIR [Suspect]
     Active Substance: OMALIZUMAB
  3. ALBUTEROL [Concomitant]
     Active Substance: ALBUTEROL
     Dosage: SU AER 108
  4. BUMETANIDE [Concomitant]
     Active Substance: BUMETANIDE
  5. FLUTICASONE SUS [Concomitant]
     Dosage: 50MCG/AC
  6. GLIPIZIDE [Concomitant]
     Active Substance: GLIPIZIDE
  7. LOSARTAN [Concomitant]
     Active Substance: LOSARTAN\LOSARTAN POTASSIUM
  8. METOPROLOL [Concomitant]
     Active Substance: METOPROLOL
  9. NOVOLOG [Concomitant]
     Active Substance: INSULIN ASPART
     Dosage: 70/3 SUP (70-30)
  10. POTASSIUM CH TBC [Concomitant]
     Dosage: 20 MEQ
  11. ROSUVASTATIN [Concomitant]
     Active Substance: ROSUVASTATIN\ROSUVASTATIN CALCIUM
  12. TAMSULOSIN [Concomitant]
     Active Substance: TAMSULOSIN
  13. TRELEGY ELLI AEP [Concomitant]
     Dosage: 100-62.5

REACTIONS (2)
  - Pain in extremity [Not Recovered/Not Resolved]
  - Ill-defined disorder [Not Recovered/Not Resolved]
